FAERS Safety Report 8261346-2 (Version None)
Quarter: 2012Q2

REPORT INFORMATION
  Report Type: 
  Country: None (occurrence: None)
  Receive Date: 20120405
  Receipt Date: 20120330
  Transmission Date: 20120825
  Serious: Yes (Other)
  Sender: FDA-Public Use
  Company Number: US-PFIZER INC-2012081723

PATIENT
  Sex: Male

DRUGS (1)
  1. DETROL LA [Suspect]
     Dosage: 4 MG, DAILY

REACTIONS (4)
  - DYSURIA [None]
  - URINE FLOW DECREASED [None]
  - URINARY HESITATION [None]
  - EMOTIONAL DISTRESS [None]
